FAERS Safety Report 5474036-6 (Version None)
Quarter: 2007Q4

REPORT INFORMATION
  Report Type: 
  Country: None (occurrence: None)
  Receive Date: 20071002
  Receipt Date: 20070920
  Transmission Date: 20080405
  Serious: Yes (Other)
  Sender: FDA-Public Use
  Company Number: PHEH2007US12671

PATIENT
  Age: 66 Year
  Sex: Male
  Weight: 83.9 kg

DRUGS (3)
  1. TRICOR [Concomitant]
     Dosage: 140 MG, QD
     Route: 048
  2. FLOMAX [Concomitant]
     Dosage: 0.4 MG, QD
     Route: 048
  3. LESCOL XL [Suspect]
     Indication: HYPERTRIGLYCERIDAEMIA
     Dosage: 80 MG, QD
     Route: 048
     Dates: start: 20070501, end: 20070915

REACTIONS (4)
  - DISCOMFORT [None]
  - DYSAESTHESIA PHARYNX [None]
  - PARAESTHESIA ORAL [None]
  - TRIGEMINAL NEURALGIA [None]
